FAERS Safety Report 11331730 (Version 1)
Quarter: 2015Q3

REPORT INFORMATION
  Report Type: Spontaneous
  Country: SK (occurrence: SK)
  Receive Date: 20150803
  Receipt Date: 20150803
  Transmission Date: 20151125
  Serious: Yes (Hospitalization, Other)
  Sender: FDA-Public Use
  Company Number: SK-REGENERON PHARMACEUTICALS, INC.-2015-11873

PATIENT

DRUGS (2)
  1. EYLEA [Suspect]
     Active Substance: AFLIBERCEPT
     Indication: PRODUCT USED FOR UNKNOWN INDICATION
     Dosage: 9 TOTAL INJECTIONS, 1 IN RIGHT EYE AND 8 IN LEFT EYE
     Route: 031
     Dates: end: 20150617
  2. EYLEA [Suspect]
     Active Substance: AFLIBERCEPT
     Dosage: 1 UNK, UNK
     Route: 031
     Dates: start: 20150617, end: 20150617

REACTIONS (2)
  - Myocardial infarction [Recovering/Resolving]
  - Rectal cancer [Unknown]

NARRATIVE: CASE EVENT DATE: 201507
